FAERS Safety Report 10924510 (Version 2)
Quarter: 2015Q2

REPORT INFORMATION
  Report Type: Spontaneous
  Country: US (occurrence: US)
  Receive Date: 20150318
  Receipt Date: 20150524
  Transmission Date: 20150821
  Serious: No
  Sender: FDA-Public Use
  Company Number: US-JNJFOC-20140503948

PATIENT
  Sex: Male

DRUGS (2)
  1. COAL TAR. [Suspect]
     Active Substance: COAL TAR
     Indication: SEBORRHOEIC DERMATITIS
     Route: 065
  2. KETOCONAZOLE. [Suspect]
     Active Substance: KETOCONAZOLE
     Indication: SEBORRHOEIC DERMATITIS
     Dosage: TWO, THREE, OR FOUR TIMES WEEKLY
     Route: 061
     Dates: start: 201404

REACTIONS (4)
  - Seborrhoeic dermatitis [Not Recovered/Not Resolved]
  - Product use issue [Unknown]
  - Drug ineffective [Recovering/Resolving]
  - Product physical consistency issue [Unknown]
